FAERS Safety Report 8291967-2 (Version None)
Quarter: 2012Q2

REPORT INFORMATION
  Report Type: 
  Country: None (occurrence: None)
  Receive Date: 20120417
  Receipt Date: 20120409
  Transmission Date: 20120825
  Serious: Yes (Hospitalization, Other)
  Sender: FDA-Public Use
  Company Number: US-ELI_LILLY_AND_COMPANY-US201204003171

PATIENT
  Sex: Female

DRUGS (1)
  1. FORTEO [Suspect]
     Indication: OSTEOPOROSIS
     Dosage: 20 UG, QD
     Dates: start: 20111101

REACTIONS (6)
  - GASTRIC ULCER [None]
  - INJECTION SITE HAEMATOMA [None]
  - ANAEMIA [None]
  - INJECTION SITE EXTRAVASATION [None]
  - HAEMOGLOBIN DECREASED [None]
  - VEIN DISORDER [None]
